FAERS Safety Report 12927119 (Version 1)
Quarter: 2016Q4

REPORT INFORMATION
  Report Type: Spontaneous
  Country: US (occurrence: US)
  Receive Date: 20161109
  Receipt Date: 20161109
  Transmission Date: 20170207
  Serious: Yes (Hospitalization)
  Sender: FDA-Public Use
  Company Number: None

PATIENT
  Age: 61 Year
  Sex: Male
  Weight: 72.3 kg

DRUGS (1)
  1. CEFAZOLIN [Suspect]
     Active Substance: CEFAZOLIN
     Indication: WOUND INFECTION
     Dates: start: 20160715, end: 20160715

REACTIONS (2)
  - Pyrexia [None]
  - Eosinophilia [None]

NARRATIVE: CASE EVENT DATE: 20160715
